FAERS Safety Report 8609725-5 (Version None)
Quarter: 2012Q3

REPORT INFORMATION
  Report Type: 
  Country: None (occurrence: None)
  Receive Date: 20120821
  Receipt Date: 20120816
  Transmission Date: 20120928
  Serious: No
  Sender: FDA-Public Use
  Company Number: US-B.I. PHARMACEUTICALS,INC./RIDGEFIELD-2011-BP-08770BP

PATIENT
  Sex: Female

DRUGS (34)
  1. PRADAXA [Suspect]
     Indication: TRANSIENT ISCHAEMIC ATTACK
  2. PRADAXA [Suspect]
     Indication: ATRIAL FIBRILLATION
  3. NEXIUM [Concomitant]
     Indication: GASTROOESOPHAGEAL REFLUX DISEASE
     Dosage: 40 MG
     Route: 048
  4. LEVOTHYROXINE SODIUM [Concomitant]
     Indication: HYPOTHYROIDISM
  5. SIMVASTATIN [Concomitant]
     Indication: BLOOD CHOLESTEROL INCREASED
     Dosage: 20 MG
     Route: 048
  6. LASIX [Concomitant]
     Indication: HYPERTENSION
  7. MUCINEX [Concomitant]
     Indication: NASAL CONGESTION
     Route: 048
  8. RESTASIS [Concomitant]
  9. POTASSIUM [Concomitant]
     Indication: ATRIAL FIBRILLATION
     Dosage: 20 MG
     Route: 048
  10. AGGRENOX [Concomitant]
  11. IRRITABLE BOWEL SYNDROME CAPSULE [Concomitant]
  12. APAP/BUTALBITAL/CAFF [Concomitant]
     Indication: HEADACHE
  13. FLEXERIL [Concomitant]
     Dosage: 10 MG
  14. ALPHAGAN [Concomitant]
     Indication: GLAUCOMA
  15. ZOLOFT [Concomitant]
     Indication: DEPRESSION
     Dosage: 150 MG
     Route: 048
  16. LASIX [Concomitant]
     Indication: FLUID RETENTION
     Dosage: 40 MG
     Route: 048
  17. FUROSEMIDE [Concomitant]
     Dosage: 40 MG
  18. LOMOTIL [Concomitant]
  19. PRADAXA [Suspect]
     Indication: CEREBROVASCULAR ACCIDENT
  20. AMITRIPTYLINE HYDROCHLORIDE [Concomitant]
     Indication: MIGRAINE
     Dosage: 25 MG
     Route: 048
  21. HYDROCODONE BITARTRATE AND ACETAMINOPHEN [Concomitant]
  22. LEVOTHYROXINE SODIUM [Concomitant]
     Indication: THYROID DISORDER
     Dosage: 50 MCG
     Route: 048
  23. NEURONTIN [Concomitant]
     Indication: LIMB INJURY
     Dosage: 300 MG
     Route: 048
  24. COMBIVENT [Concomitant]
     Route: 055
  25. SUMATRIPTAN SUCCINAT [Concomitant]
     Dosage: 100 MG
  26. VOLTAREN [Concomitant]
  27. PRADAXA [Suspect]
     Indication: PROTEIN S DEFICIENCY
     Dosage: 300 MG
     Route: 048
     Dates: start: 20110301
  28. CALCIUM CARBONATE [Concomitant]
  29. CALCIUM [Concomitant]
     Route: 048
  30. VITAMIN B-12 [Concomitant]
     Indication: VITAMIN B12 DEFICIENCY
  31. BENICAR HCT [Concomitant]
     Indication: HYPERTENSION
     Route: 048
  32. LUTEIN [Concomitant]
     Dosage: 6 MG
  33. MIACALCIUM [Concomitant]
  34. ZOFRAN [Concomitant]
     Dosage: 4 MG

REACTIONS (5)
  - HYPOAESTHESIA ORAL [None]
  - HYPOAESTHESIA [None]
  - PARAESTHESIA [None]
  - PARAESTHESIA ORAL [None]
  - ASTHENIA [None]
